FAERS Safety Report 6688380-8 (Version None)
Quarter: 2010Q2

REPORT INFORMATION
  Report Type: 
  Country: None (occurrence: None)
  Receive Date: 20100420
  Receipt Date: 20100412
  Transmission Date: 20101027
  Serious: Yes (Hospitalization, Other)
  Sender: FDA-Public Use
  Company Number: PHHY2009BR55030

PATIENT
  Age: 59 Year
  Sex: Male

DRUGS (1)
  1. FORASEQ [Suspect]
     Indication: DYSPNOEA
     Dosage: BID

REACTIONS (5)
  - ANGIOPLASTY [None]
  - CARDIOMEGALY [None]
  - CORONARY ARTERY OCCLUSION [None]
  - DYSPNOEA [None]
  - PRODUCT QUALITY ISSUE [None]
